FAERS Safety Report 10071619 (Version 2)
Quarter: 2014Q2

REPORT INFORMATION
  Report Type: Spontaneous
  Country: US (occurrence: US)
  Receive Date: 20140410
  Receipt Date: 20140603
  Transmission Date: 20141212
  Serious: Yes (Other)
  Sender: FDA-Public Use
  Company Number: US-BRISTOL-MYERS SQUIBB COMPANY-20606620

PATIENT
  Age: 66 Year
  Sex: Female

DRUGS (16)
  1. BYETTA [Suspect]
     Dates: start: 20060601, end: 20110628
  2. INSULIN GLARGINE [Concomitant]
     Dosage: 1DF=18UNITS
     Route: 058
  3. SINGULAIR [Concomitant]
     Dosage: TABS
     Route: 048
  4. ASPIRIN [Concomitant]
     Dosage: 1DF=2TABS
     Route: 048
  5. NIACIN [Concomitant]
     Route: 048
  6. ATENOLOL [Concomitant]
     Dosage: TABS
     Route: 048
  7. ADVAIR DISKUS [Concomitant]
     Dosage: 1DF=1 PUFF,50MCG INHALATION
  8. OXYCODONE [Concomitant]
     Indication: PAIN
     Route: 048
  9. PANTOPRAZOLE [Concomitant]
     Dosage: 1DF=40MG INJ,10ML
     Route: 042
  10. VITAMIN B12 [Concomitant]
     Dosage: 1DF=1TAB
     Route: 048
  11. VITAMIN C [Concomitant]
     Dosage: TABS
     Route: 048
  12. SIMVASTATIN [Concomitant]
     Dosage: TABS
     Route: 048
  13. TRIAMTERENE [Concomitant]
     Route: 048
  14. DEXLANSOPRAZOLE [Concomitant]
     Dosage: CAPS
     Route: 048
  15. POTASSIUM CHLORIDE [Concomitant]
     Route: 048
  16. VITAMIN D [Concomitant]
     Dosage: 1DF=50000UNITS
     Route: 048

REACTIONS (1)
  - Pancreatic carcinoma [Unknown]
